FAERS Safety Report 6838892-9 (Version None)
Quarter: 2010Q3

REPORT INFORMATION
  Report Type: 
  Country: None (occurrence: None)
  Receive Date: 20100713
  Receipt Date: 20070808
  Transmission Date: 20110219
  Serious: No
  Sender: FDA-Public Use
  Company Number: US-PFIZER INC-2007040057

PATIENT
  Age: 55 Year
  Sex: Male
  Weight: 72.7 kg

DRUGS (4)
  1. CHANTIX [Suspect]
     Indication: SMOKING CESSATION THERAPY
     Dates: start: 20070509
  2. KLONOPIN [Interacting]
  3. NORCO [Concomitant]
  4. ALL OTHER THERAPEUTIC PRODUCTS [Concomitant]

REACTIONS (7)
  - DRUG INEFFECTIVE [None]
  - DRUG INTERACTION [None]
  - FEELING JITTERY [None]
  - INSOMNIA [None]
  - NAUSEA [None]
  - VERTIGO [None]
  - VOMITING [None]
